FAERS Safety Report 6079681-5 (Version None)
Quarter: 2009Q1

REPORT INFORMATION
  Report Type: 
  Country: None (occurrence: None)
  Receive Date: 20090212
  Receipt Date: 20090116
  Transmission Date: 20090719
  Serious: Yes (Other)
  Sender: FDA-Public Use
  Company Number: 147542

PATIENT
  Age: 79 Year
  Sex: Male

DRUGS (14)
  1. LEUCOVORIN CALCIUM [Suspect]
     Indication: COLON CANCER
     Dosage: 12 CYCLES
     Dates: start: 20010701
  2. LEUCOVORIN CALCIUM [Suspect]
     Indication: METASTASES TO LIVER
     Dosage: 12 CYCLES
     Dates: start: 20010701
  3. LEUCOVORIN CALCIUM [Suspect]
     Indication: COLON CANCER
     Dosage: 12 CYCLES
     Dates: start: 20050501
  4. LEUCOVORIN CALCIUM [Suspect]
     Indication: METASTASES TO LIVER
     Dosage: 12 CYCLES
     Dates: start: 20050501
  5. FLUOROURACIL [Suspect]
     Indication: COLON CANCER
     Dosage: 12 CYCLES 650 BOLUS THEN 4 G INFUSION
     Dates: start: 20010701
  6. FLUOROURACIL [Suspect]
     Indication: METASTASES TO LIVER
     Dosage: 12 CYCLES 650 BOLUS THEN 4 G INFUSION
     Dates: start: 20010701
  7. FLUOROURACIL [Suspect]
     Indication: COLON CANCER
     Dosage: 12 CYCLES 650 BOLUS THEN 4 G INFUSION
     Dates: start: 20050501
  8. FLUOROURACIL [Suspect]
     Indication: METASTASES TO LIVER
     Dosage: 12 CYCLES 650 BOLUS THEN 4 G INFUSION
     Dates: start: 20050501
  9. OXALIPLATIN [Suspect]
     Indication: METASTASES TO LIVER
     Dosage: 175 MG 140 MG
     Dates: start: 20050101
  10. OXALIPLATIN [Suspect]
     Indication: METASTASES TO LIVER
     Dosage: 175 MG 140 MG
     Dates: start: 20050501
  11. (GOSERELIN) [Concomitant]
  12. (CYPROTERONE ACETATE) [Concomitant]
  13. (GRANISETRON) [Concomitant]
  14. DEXAMETHASONE [Concomitant]

REACTIONS (8)
  - BLOOD ALBUMIN DECREASED [None]
  - LEUKOCYTOCLASTIC VASCULITIS [None]
  - METASTASES TO LIVER [None]
  - METASTATIC NEOPLASM [None]
  - OEDEMA PERIPHERAL [None]
  - PROSTATE CANCER [None]
  - RASH ERYTHEMATOUS [None]
  - SKIN HYPERPIGMENTATION [None]
